FAERS Safety Report 9099688 (Version 1)
Quarter: 2013Q1

REPORT INFORMATION
  Report Type: Spontaneous
  Country: AU (occurrence: AU)
  Receive Date: 20130215
  Receipt Date: 20130215
  Transmission Date: 20140127
  Serious: Yes (Other)
  Sender: FDA-Public Use
  Company Number: PHHY2013AU014595

PATIENT
  Sex: Male

DRUGS (2)
  1. ACLASTA [Suspect]
     Dosage: UNK
     Route: 042
     Dates: start: 2011
  2. ACLASTA [Suspect]
     Dosage: UNK
     Route: 042
     Dates: start: 20120224

REACTIONS (1)
  - Rib fracture [Recovered/Resolved]
